FAERS Safety Report 9088483 (Version 1)
Quarter: 2013Q1

REPORT INFORMATION
  Report Type: Report from Study
  Country: US (occurrence: US)
  Receive Date: 20130131
  Receipt Date: 20130131
  Transmission Date: 20140127
  Serious: No
  Sender: FDA-Public Use
  Company Number: US-ABBOTT-12P-163-0995291-00

PATIENT
  Age: 62 Year
  Sex: Female

DRUGS (5)
  1. HUMIRA [Suspect]
     Indication: PSORIATIC ARTHROPATHY
     Route: 058
     Dates: start: 2007
  2. VICTOZA [Concomitant]
     Indication: DIABETES MELLITUS
  3. COSOPT [Concomitant]
     Indication: GLAUCOMA
  4. XALATAN [Concomitant]
     Indication: GLAUCOMA
  5. CPAP MACHINE [Concomitant]
     Indication: SLEEP APNOEA SYNDROME

REACTIONS (3)
  - Nasopharyngitis [Recovered/Resolved]
  - Dermatitis contact [Recovering/Resolving]
  - Arthralgia [Unknown]
